FAERS Safety Report 14366890 (Version 2)
Quarter: 2018Q1

REPORT INFORMATION
  Report Type: Spontaneous
  Country: CO (occurrence: CO)
  Receive Date: 20180109
  Receipt Date: 20180122
  Transmission Date: 20180509
  Serious: Yes (Death, Hospitalization, Other)
  Sender: FDA-Public Use
  Company Number: CO-BAYER-2018-004084

PATIENT
  Age: 30 Year
  Sex: Male
  Weight: 100 kg

DRUGS (4)
  1. OPTIRAY [Suspect]
     Active Substance: IOVERSOL
     Indication: CHEST SCAN
     Dosage: 80 ML, ONCE
     Dates: start: 20170901, end: 20170901
  2. ULTRAVIST? 300 [Suspect]
     Active Substance: IOPROMIDE
     Indication: CHEST SCAN
     Dosage: UNK UNK, ONCE
     Dates: start: 20170901, end: 20170901
  3. OPTIRAY [Suspect]
     Active Substance: IOVERSOL
     Indication: COMPUTERISED TOMOGRAM ABDOMEN
  4. ULTRAVIST? 300 [Suspect]
     Active Substance: IOPROMIDE
     Indication: COMPUTERISED TOMOGRAM ABDOMEN
     Dosage: UNK UNK, ONCE
     Dates: start: 20170902, end: 20170902

REACTIONS (31)
  - Cardio-respiratory arrest [None]
  - Anaphylactic shock [Fatal]
  - Hypertension [None]
  - Nervous system disorder [None]
  - Blood urea increased [None]
  - Pain [None]
  - Cerebral haemorrhage [None]
  - Slow response to stimuli [None]
  - Brain injury [None]
  - Cerebral ischaemia [None]
  - Secretion discharge [None]
  - Brain hypoxia [None]
  - Brain oedema [None]
  - Contrast media allergy [Fatal]
  - Pulse absent [None]
  - Vestibular function test abnormal [None]
  - Prerenal failure [None]
  - Intracranial pressure increased [None]
  - Respiratory failure [None]
  - Pupil fixed [None]
  - Subarachnoid haemorrhage [None]
  - Laryngospasm [Fatal]
  - Pharyngeal oedema [Fatal]
  - Tachycardia [None]
  - Encephalopathy [None]
  - Oxygen saturation decreased [None]
  - Oculocephalogyric reflex absent [None]
  - Areflexia [None]
  - Unresponsive to stimuli [None]
  - Cerebral disorder [None]
  - Brain death [None]

NARRATIVE: CASE EVENT DATE: 20170902
